FAERS Safety Report 5264220-9 (Version None)
Quarter: 2007Q1

REPORT INFORMATION
  Report Type: 
  Country: None (occurrence: None)
  Receive Date: 20070313
  Receipt Date: 20070301
  Transmission Date: 20070707
  Serious: Yes (Other)
  Sender: FDA-Public Use
  Company Number: CH-SANOFI-SYNTHELABO-A01200702230

PATIENT
  Age: 63 Year
  Sex: Female

DRUGS (8)
  1. MEVALOTIN [Concomitant]
     Indication: DRUG USE FOR UNKNOWN INDICATION
     Dosage: UNK
     Route: 048
  2. COVERSUM [Concomitant]
     Indication: DRUG USE FOR UNKNOWN INDICATION
     Dosage: UNK
     Route: 048
  3. NEBILET [Concomitant]
     Indication: DRUG USE FOR UNKNOWN INDICATION
     Route: 048
  4. LYRICA [Suspect]
     Indication: POLYNEUROPATHY
     Dosage: 150 MG
     Route: 048
     Dates: start: 20060501
  5. LEXOTANIL [Suspect]
     Indication: DRUG USE FOR UNKNOWN INDICATION
     Route: 048
  6. ZOLPIDEM TARTRATE [Suspect]
     Indication: DRUG USE FOR UNKNOWN INDICATION
     Route: 048
  7. ASPIRIN [Concomitant]
     Indication: DRUG USE FOR UNKNOWN INDICATION
     Route: 048
  8. ELTROXIN [Concomitant]
     Indication: DRUG USE FOR UNKNOWN INDICATION
     Route: 048

REACTIONS (4)
  - ABNORMAL SENSATION IN EYE [None]
  - EYE IRRITATION [None]
  - EYE PAIN [None]
  - VISUAL FIELD DEFECT [None]
